FAERS Safety Report 19670345 (Version 1)
Quarter: 2021Q3

REPORT INFORMATION
  Report Type: Spontaneous
  Country: US (occurrence: US)
  Receive Date: 20210806
  Receipt Date: 20210806
  Transmission Date: 20211014
  Serious: Yes (Other)
  Sender: FDA-Public Use
  Company Number: US-SAOL THERAPEUTICS-2021SAO00050

PATIENT
  Age: 10 Year
  Sex: Male
  Weight: 42 kg

DRUGS (3)
  1. LIORESAL [Suspect]
     Active Substance: BACLOFEN
     Indication: MUSCLE SPASTICITY
     Dosage: 762 ?G, \DAY
     Route: 037
     Dates: start: 2021
  2. LIORESAL [Suspect]
     Active Substance: BACLOFEN
     Indication: MUSCLE SPASTICITY
     Dosage: 861.4 ?G, \DAY
     Route: 037
     Dates: end: 20210202
  3. LIORESAL [Suspect]
     Active Substance: BACLOFEN
     Indication: MUSCLE SPASTICITY
     Dosage: 776.74 ?G, \DAY
     Route: 037
     Dates: start: 20210202, end: 2021

REACTIONS (7)
  - Somnolence [Recovered/Resolved]
  - Device infusion issue [Recovered/Resolved]
  - Complication associated with device [Recovered/Resolved]
  - Drug withdrawal syndrome [Recovered/Resolved]
  - Overdose [Recovered/Resolved]
  - Ulcer [Unknown]
  - Underdose [Recovered/Resolved]

NARRATIVE: CASE EVENT DATE: 20200618
